FAERS Safety Report 14830021 (Version 2)
Quarter: 2018Q2

REPORT INFORMATION
  Report Type: Report from Study
  Country: US (occurrence: US)
  Receive Date: 20180430
  Receipt Date: 20180511
  Transmission Date: 20180711
  Serious: Yes (Hospitalization)
  Sender: FDA-Public Use
  Company Number: US-PFIZER INC-2017542902

PATIENT
  Age: 57 Year
  Sex: Female
  Weight: 56 kg

DRUGS (9)
  1. PALBOCICLIB [Suspect]
     Active Substance: PALBOCICLIB
     Indication: PANCREATIC CARCINOMA METASTATIC
     Dosage: 100 MG DAILY, DAYS 1-21 OF EACH 28-DAY CYCLE
     Route: 048
     Dates: start: 20171201, end: 20171212
  2. LEVOXYL [Concomitant]
     Active Substance: LEVOTHYROXINE SODIUM
     Indication: HYPOTHYROIDISM
     Dosage: 1 TABLET, 50 MCG TABLET, DAILY
     Route: 048
     Dates: start: 1992
  3. LORAZEPAM. [Concomitant]
     Active Substance: LORAZEPAM
     Indication: ANXIETY
     Dosage: 1 TABLET, EVERY 6 HOURS
     Route: 048
     Dates: start: 201701
  4. LORAZEPAM. [Concomitant]
     Active Substance: LORAZEPAM
     Indication: NAUSEA
  5. ZENPEP [Concomitant]
     Active Substance: PANCRELIPASE AMYLASE\PANCRELIPASE LIPASE\PANCRELIPASE PROTEASE
     Indication: PANCREATIC FAILURE
     Dosage: 2 CAPSULES WITH MEALS
     Route: 048
     Dates: start: 201612
  6. OXYCODONE [Concomitant]
     Active Substance: OXYCODONE
     Indication: PAIN
     Dosage: (1-2 TABLET, 5 MG TABLET, EVERY 6 HOURS), 4X/DAY
     Route: 048
     Dates: start: 201701
  7. PROCHLORPERAZINE MALEATE. [Concomitant]
     Active Substance: PROCHLORPERAZINE MALEATE
     Indication: NAUSEA
     Dosage: 10 MG, 3X/DAY (EVERY 8 HOURS)
     Route: 048
     Dates: start: 201701
  8. RANITIDINE HCL [Concomitant]
     Active Substance: RANITIDINE HYDROCHLORIDE
     Indication: GASTROOESOPHAGEAL REFLUX DISEASE
     Dosage: 150 MG, UNK
     Route: 048
     Dates: start: 20171129
  9. ABRAXANE [Suspect]
     Active Substance: PACLITAXEL
     Indication: PANCREATIC CARCINOMA METASTATIC
     Dosage: 125 MG (IV MG/M2/DAY) OVER 30 MINUTES, EVERY WEEK FOR FIRST 3 WEEKS OF EACH 28 DAY CYCLE
     Route: 042
     Dates: start: 20171129, end: 20171212

REACTIONS (3)
  - Vomiting [Recovered/Resolved]
  - Hypokalaemia [Recovered/Resolved]
  - Diarrhoea [Recovered/Resolved]

NARRATIVE: CASE EVENT DATE: 20171217
